FAERS Safety Report 24683430 (Version 2)
Quarter: 2024Q4

REPORT INFORMATION
  Report Type: Report from Study
  Country: GB (occurrence: GB)
  Receive Date: 20241201
  Receipt Date: 20241206
  Transmission Date: 20250114
  Serious: Yes (Other)
  Sender: JOHNSON AND JOHNSON
  Company Number: GB-JNJFOC-20241172841

PATIENT
  Age: 71 Year
  Sex: Female

DRUGS (1)
  1. SIMPONI [Suspect]
     Active Substance: GOLIMUMAB
     Indication: Psoriatic arthropathy
     Route: 058

REACTIONS (2)
  - Neoplasm malignant [Recovering/Resolving]
  - Deep vein thrombosis [Not Recovered/Not Resolved]
